FAERS Safety Report 14130697 (Version 2)
Quarter: 2017Q4

REPORT INFORMATION
  Report Type: Report from Study
  Country: CO (occurrence: CO)
  Receive Date: 20171026
  Receipt Date: 20171031
  Transmission Date: 20180321
  Serious: Yes (Death, Hospitalization, Other)
  Sender: FDA-Public Use
  Company Number: CO-ASTELLAS-2017US042845

PATIENT
  Age: 60 Year
  Sex: Male
  Weight: 50 kg

DRUGS (1)
  1. ENZALUTAMIDE [Suspect]
     Active Substance: ENZALUTAMIDE
     Indication: HORMONE-REFRACTORY PROSTATE CANCER
     Route: 048
     Dates: start: 20170925, end: 20171023

REACTIONS (9)
  - Pain [Unknown]
  - Epistaxis [Unknown]
  - Malaise [Recovering/Resolving]
  - Malignant neoplasm progression [Not Recovered/Not Resolved]
  - Respiratory failure [Fatal]
  - Pallor [Unknown]
  - Urine output decreased [Unknown]
  - Depressed level of consciousness [Unknown]
  - Dysphagia [Not Recovered/Not Resolved]

NARRATIVE: CASE EVENT DATE: 20171018
